FAERS Safety Report 10747334 (Version 1)
Quarter: 2015Q1

REPORT INFORMATION
  Report Type: Spontaneous
  Country: IT (occurrence: None)
  Receive Date: 20150120
  Receipt Date: 20150120
  Transmission Date: 20150721
  Serious: Yes (Other)
  Sender: FDA-Public Use
  Company Number: AEGR000632

PATIENT
  Age: 36 Year
  Sex: Male
  Weight: 96.8 kg

DRUGS (6)
  1. CLOPIDORGREL (CLOPIDOGREL BESYLATE) [Concomitant]
  2. NIACIN. [Concomitant]
     Active Substance: NIACIN
  3. LOMITAPIDE MESYLATE [Suspect]
     Active Substance: LOMITAPIDE MESYLATE
     Indication: TYPE IIA HYPERLIPIDAEMIA
     Dates: start: 20090723
  4. VALSARTAN. [Concomitant]
     Active Substance: VALSARTAN
  5. ASPIRIN (ACETYLSALICYLIC ACID) [Concomitant]
     Active Substance: ASPIRIN
  6. ATORVASTATIN (ATORVASTATIN CALCIUM) [Concomitant]

REACTIONS (4)
  - Hepatomegaly [None]
  - Hepatic steatosis [None]
  - Alanine aminotransferase increased [None]
  - Aspartate aminotransferase increased [None]
